FAERS Safety Report 20475473 (Version 1)
Quarter: 2022Q1

REPORT INFORMATION
  Report Type: Spontaneous
  Country: US (occurrence: US)
  Receive Date: 20220215
  Receipt Date: 20220215
  Transmission Date: 20220423
  Serious: No
  Sender: FDA-Public Use
  Company Number: US-PFIZER INC-202101571747

PATIENT
  Age: 55 Year
  Sex: Male
  Weight: 140 kg

DRUGS (3)
  1. INLYTA [Suspect]
     Active Substance: AXITINIB
     Indication: Renal cancer
     Dosage: 10 MG, DAILY
  2. INLYTA [Suspect]
     Active Substance: AXITINIB
     Indication: Pulmonary mass
     Dosage: 3 MG, 2X/DAY
     Route: 048
     Dates: start: 202102
  3. KEYTRUDA [Concomitant]
     Active Substance: PEMBROLIZUMAB
     Indication: Renal cancer stage IV
     Dosage: UNK
     Dates: start: 202102, end: 20210329

REACTIONS (3)
  - Fatigue [Not Recovered/Not Resolved]
  - Blood pressure increased [Not Recovered/Not Resolved]
  - Ulcer [Recovered/Resolved]

NARRATIVE: CASE EVENT DATE: 20210401
